FAERS Safety Report 9105457 (Version 1)
Quarter: 2013Q1

REPORT INFORMATION
  Report Type: Spontaneous
  Country: US (occurrence: US)
  Receive Date: 20130220
  Receipt Date: 20130220
  Transmission Date: 20140127
  Serious: No
  Sender: FDA-Public Use
  Company Number: US-PFIZER INC-2013064527

PATIENT
  Age: 47 Year
  Sex: Female
  Weight: 73.47 kg

DRUGS (14)
  1. LYRICA [Suspect]
     Indication: NEURALGIA
     Dosage: 50 MG, 3X/DAY
     Route: 048
     Dates: start: 201001, end: 2010
  2. LYRICA [Suspect]
     Dosage: 75 MG, 3X/DAY
     Route: 048
     Dates: start: 2010, end: 2010
  3. LYRICA [Suspect]
     Dosage: 100 MG, 3X/DAY
     Route: 048
     Dates: start: 2010, end: 2010
  4. LYRICA [Suspect]
     Dosage: 150 MG, 3X/DAY
     Route: 048
     Dates: start: 2010
  5. OXYCODONE [Concomitant]
     Dosage: UNK
  6. ZANAFLEX [Concomitant]
     Dosage: UNK
  7. ATIVAN [Concomitant]
     Dosage: UNK
  8. REMERON [Concomitant]
     Dosage: UNK
  9. EXCEDRIN MIGRAINE [Concomitant]
     Indication: MIGRAINE
     Dosage: UNK
  10. ADVAIR [Concomitant]
     Dosage: UNK
  11. FLONASE [Concomitant]
     Dosage: UNK
     Route: 045
  12. ZANTAC [Concomitant]
     Indication: GASTROOESOPHAGEAL REFLUX DISEASE
     Dosage: UNK
  13. FISH OIL [Concomitant]
     Dosage: UNK
  14. GLUCOSAMINE HYDROCHLORIDE/CHONDROITIN SULFATE [Concomitant]
     Dosage: UNK

REACTIONS (1)
  - Weight increased [Not Recovered/Not Resolved]
